FAERS Safety Report 9862174 (Version 4)
Quarter: 2014Q2

REPORT INFORMATION
  Report Type: Spontaneous
  Country: US (occurrence: US)
  Receive Date: 20140203
  Receipt Date: 20140408
  Transmission Date: 20141212
  Serious: Yes (Other)
  Sender: FDA-Public Use
  Company Number: US-ASTELLAS-2013US013535

PATIENT
  Age: 76 Year
  Sex: Male
  Weight: 116 kg

DRUGS (16)
  1. XTANDI [Suspect]
     Indication: PROSTATE CANCER
     Dosage: 160 MG, UID/QD
     Route: 048
     Dates: start: 201308
  2. COUMADIN                           /00014802/ [Concomitant]
     Indication: ANTICOAGULANT THERAPY
     Dosage: 25 MG, UNKNOWN/D
     Route: 065
  3. CELEXA                             /00582602/ [Concomitant]
     Indication: DEPRESSION
     Dosage: 40 MG, UNKNOWN/D
     Route: 065
  4. COREG [Concomitant]
     Indication: PROPHYLAXIS
     Dosage: 12.5 MG, BID
     Route: 065
  5. LASIX                              /00032601/ [Concomitant]
     Indication: FLUID RETENTION
     Dosage: 110 MG, UNKNOWN/D
     Route: 065
  6. POTASSIUM [Concomitant]
     Indication: PRODUCT USED FOR UNKNOWN INDICATION
     Dosage: 10 MG, UID/QD
     Route: 065
  7. CELEBREX [Concomitant]
     Indication: PRODUCT USED FOR UNKNOWN INDICATION
     Dosage: 200 MG, UNKNOWN/D
     Route: 065
  8. OXYCODONE [Concomitant]
     Indication: PAIN
     Dosage: 5 MG, TID
     Route: 065
  9. TRAMADOL [Concomitant]
     Indication: PAIN
     Dosage: 50 MG, TID
     Route: 065
  10. METFORMIN [Concomitant]
     Indication: DIABETES MELLITUS
     Dosage: 500 MG, UID/QD
     Route: 065
  11. ALLOPURINOL [Concomitant]
     Indication: GOUT
     Dosage: 300 MG, UID/QD
     Route: 065
  12. ARICEPT [Concomitant]
     Indication: DEMENTIA ALZHEIMER^S TYPE
     Dosage: 10 MG, UNKNOWN/D
     Route: 065
  13. ZETIA [Concomitant]
     Indication: BLOOD CHOLESTEROL INCREASED
     Dosage: 10 MG, UID/QD
     Route: 065
  14. FLEXERIL                           /00428402/ [Concomitant]
     Indication: MUSCLE RELAXANT THERAPY
     Dosage: 5 MG, UNKNOWN/D
     Route: 065
  15. LOSARTAN [Concomitant]
     Indication: HYPERTENSION
     Dosage: 25 MG, UNKNOWN/D
     Route: 065
  16. ZOMETA [Concomitant]
     Indication: PRODUCT USED FOR UNKNOWN INDICATION
     Dosage: UNK
     Route: 065

REACTIONS (5)
  - Drug dose omission [Unknown]
  - Blister [Recovered/Resolved]
  - Dementia [Not Recovered/Not Resolved]
  - Constipation [Unknown]
  - Fall [Unknown]
